FAERS Safety Report 16151569 (Version 3)
Quarter: 2019Q2

REPORT INFORMATION
  Report Type: Spontaneous
  Country: US (occurrence: US)
  Receive Date: 20190403
  Receipt Date: 20190430
  Transmission Date: 20190711
  Serious: Yes (Other)
  Sender: FDA-Public Use
  Company Number: US-GLAXOSMITHKLINE-US2019GSK028362

PATIENT
  Sex: Female
  Weight: 72.56 kg

DRUGS (1)
  1. LAMOTRIGINE. [Suspect]
     Active Substance: LAMOTRIGINE
     Indication: SEIZURE
     Dosage: 100 MG, BID
     Route: 048
     Dates: start: 20190117, end: 20190121

REACTIONS (6)
  - Feeling abnormal [Unknown]
  - Dysphagia [Unknown]
  - Product origin unknown [Unknown]
  - Product design issue [Unknown]
  - Foreign body in respiratory tract [Unknown]
  - Disability [Unknown]
